FAERS Safety Report 8205547-8 (Version None)
Quarter: 2012Q1

REPORT INFORMATION
  Report Type: 
  Country: None (occurrence: None)
  Receive Date: 20120313
  Receipt Date: 20120228
  Transmission Date: 20120608
  Serious: Yes (Hospitalization, Other)
  Sender: FDA-Public Use
  Company Number: US-ELI_LILLY_AND_COMPANY-US201202008399

PATIENT
  Age: 82 Year
  Sex: Female

DRUGS (3)
  1. PREDNISONE [Concomitant]
  2. CYMBALTA [Suspect]
     Indication: DEPRESSION
     Dosage: UNK UNK, UNKNOWN
  3. LORAZEPAM [Concomitant]

REACTIONS (7)
  - BLISTER [None]
  - ROSACEA [None]
  - FEELING ABNORMAL [None]
  - DEPRESSION [None]
  - IRRITABLE BOWEL SYNDROME [None]
  - EYELID EXFOLIATION [None]
  - DIPLOPIA [None]
